FAERS Safety Report 21964861 (Version 1)
Quarter: 2023Q1

REPORT INFORMATION
  Report Type: Spontaneous
  Country: US (occurrence: US)
  Receive Date: 20230207
  Receipt Date: 20230207
  Transmission Date: 20230417
  Serious: No
  Sender: FDA-Public Use
  Company Number: US-JNJFOC-20230143266

PATIENT

DRUGS (2)
  1. DARZALEX [Suspect]
     Active Substance: DARATUMUMAB
     Indication: Product used for unknown indication
     Dosage: 100 MG VIAL
     Route: 065
  2. DARZALEX [Suspect]
     Active Substance: DARATUMUMAB
     Dosage: 400 MG VIAL
     Route: 065

REACTIONS (2)
  - Pain [Unknown]
  - Hypoaesthesia [Unknown]
